FAERS Safety Report 15741286 (Version 13)
Quarter: 2021Q2

REPORT INFORMATION
  Report Type: Report from Study
  Country: DE (occurrence: DE)
  Receive Date: 20181219
  Receipt Date: 20210607
  Transmission Date: 20210716
  Serious: Yes (Hospitalization)
  Sender: FDA-Public Use
  Company Number: DE-INCYTE CORPORATION-2018IN009965

PATIENT

DRUGS (41)
  1. METOPROLOL. [Concomitant]
     Active Substance: METOPROLOL
     Indication: HYPERTENSION
     Dosage: 95 MG, (1/2?0?1/2)
     Route: 048
  2. L?THYROXIN [Concomitant]
     Active Substance: LEVOTHYROXINE SODIUM
     Dosage: 112 UG, QD
     Route: 048
     Dates: start: 20200131
  3. LYRICA [Concomitant]
     Active Substance: PREGABALIN
     Indication: PARAESTHESIA
     Dosage: 75 MG, QHS
     Route: 048
     Dates: start: 20180605, end: 20180703
  4. DICLOFENAC;ORPHENADRINE [Concomitant]
     Indication: RENAL FAILURE
  5. NOVAMINSULFON [Concomitant]
     Active Substance: METAMIZOLE
     Indication: PAIN
     Dosage: 40 DRP, PRN
     Route: 048
     Dates: start: 20190823, end: 202001
  6. GABAPENTIN. [Concomitant]
     Active Substance: GABAPENTIN
     Dosage: 100 MG, QD
     Route: 048
     Dates: start: 20201229
  7. GABAPENTIN. [Concomitant]
     Active Substance: GABAPENTIN
     Dosage: 100 MG, QD
     Route: 048
     Dates: start: 202010, end: 202011
  8. METAMIZOL [METAMIZOLE SODIUM] [Concomitant]
     Dosage: 500 MG (30?30?30, DROPS)
     Route: 065
     Dates: start: 20201126, end: 20201228
  9. L?THYROXIN [Concomitant]
     Active Substance: LEVOTHYROXINE SODIUM
     Indication: HYPOTHYROIDISM
     Dosage: 125 UG, QOD (EVERY SECOND DAY) (1?0?0)
     Route: 048
     Dates: end: 201812
  10. L?THYROXIN [Concomitant]
     Active Substance: LEVOTHYROXINE SODIUM
     Dosage: 150 UG, QOD (EVERY SECOND DAY) (1?0?0)
     Route: 048
     Dates: end: 20181201
  11. CANDESARTAN. [Concomitant]
     Active Substance: CANDESARTAN
     Indication: HYPERTENSION
     Dosage: 32 MG, QD (1?0?0)
     Route: 048
     Dates: start: 2018
  12. NOVAMINSULFON [Concomitant]
     Active Substance: METAMIZOLE
     Dosage: 80 DRP, QD
     Route: 048
     Dates: start: 20200131, end: 202006
  13. JAKAVI [Suspect]
     Active Substance: RUXOLITINIB
     Indication: POLYCYTHAEMIA VERA
     Dosage: 10 MG, BID
     Route: 048
     Dates: start: 20180327, end: 20210309
  14. DEKRISTOL [Concomitant]
     Active Substance: CHOLECALCIFEROL
     Indication: PROPHYLAXIS
     Dosage: 20000 IE, QMO
     Route: 048
  15. ORTOTON [METHOCARBAMOL] [Concomitant]
     Active Substance: METHOCARBAMOL
     Indication: PAIN
     Dosage: 750 MG, 0?0?0?2
     Route: 048
     Dates: start: 20200131, end: 202006
  16. GABAPENTIN. [Concomitant]
     Active Substance: GABAPENTIN
     Indication: POLYNEUROPATHY
     Dosage: 100 MG, BID
     Route: 065
     Dates: start: 20200709, end: 202010
  17. METAMIZOL [METAMIZOLE SODIUM] [Concomitant]
     Indication: SPINAL OSTEOARTHRITIS
     Dosage: 500 MG (1?1?1?1)
     Route: 048
     Dates: start: 20200617, end: 20200708
  18. OPIPRAMOL [Concomitant]
     Active Substance: OPIPRAMOL
     Indication: RESTLESSNESS
     Dosage: 83.29 MG (5?5?5?20, DROPS)
     Route: 048
     Dates: start: 20200924
  19. LORAZEPAM. [Concomitant]
     Active Substance: LORAZEPAM
     Indication: RESTLESSNESS
     Dosage: 1 MG (AS NEEDED) (1/2?0?1/2)
     Route: 048
     Dates: start: 20200709
  20. OMEPRAZOL [OMEPRAZOLE] [Concomitant]
     Active Substance: OMEPRAZOLE
     Indication: GASTROOESOPHAGEAL REFLUX DISEASE
     Dosage: 40 MG, QD (0?0?1)
     Route: 048
  21. CIPROFLOXACIN. [Concomitant]
     Active Substance: CIPROFLOXACIN
     Indication: URINARY TRACT INFECTION
     Dosage: 500 MG, BID
     Route: 048
     Dates: start: 20180703, end: 20180707
  22. ASPIRIN. [Concomitant]
     Active Substance: ASPIRIN
     Indication: POLYCYTHAEMIA VERA
     Dosage: 100 MG, QOD (1?0?0) (EVERY SECOND DAY)
     Route: 058
     Dates: start: 20180508
  23. LIDOCAINE. [Concomitant]
     Active Substance: LIDOCAINE
     Indication: PAIN
     Dosage: 700 MG, QHS
     Route: 062
     Dates: end: 201812
  24. GABAPENTIN. [Concomitant]
     Active Substance: GABAPENTIN
     Dosage: 300 MG, BID
     Route: 048
     Dates: start: 202010, end: 202011
  25. ANALGESIA [Concomitant]
     Active Substance: UNSPECIFIED INGREDIENT
     Indication: SPINAL OSTEOARTHRITIS
     Dosage: UNK
     Route: 042
     Dates: start: 20200617, end: 20200618
  26. JAKAVI [Suspect]
     Active Substance: RUXOLITINIB
     Dosage: 5 MG, BID
     Route: 048
     Dates: start: 20210310
  27. GABAPENTIN. [Concomitant]
     Active Substance: GABAPENTIN
     Dosage: 100 MG, TID
     Route: 048
     Dates: start: 202011, end: 20201228
  28. TELMISARTAN. [Concomitant]
     Active Substance: TELMISARTAN
     Indication: HYPERTENSION
     Dosage: 80 MG, QD (0?0?1)
     Route: 048
     Dates: end: 20180901
  29. L?THYROXIN [Concomitant]
     Active Substance: LEVOTHYROXINE SODIUM
     Dosage: 125 UG, QD
     Route: 048
     Dates: start: 201812, end: 202001
  30. CLOBETASOL [Concomitant]
     Active Substance: CLOBETASOL
     Indication: LICHEN SCLEROSUS
     Dosage: 0.44 MG, BID ( 1?0?1)
     Route: 065
  31. DICLOFENAC;ORPHENADRINE [Concomitant]
     Indication: OSTEOARTHRITIS
     Dosage: UNK
     Route: 062
     Dates: start: 20190823, end: 20200709
  32. NITROLINGUAL [Concomitant]
     Active Substance: NITROGLYCERIN
     Indication: HYPERTENSION
     Dosage: 0.4 MG, PRN
     Route: 048
     Dates: start: 20181002, end: 20200709
  33. TRAMABIAN [Concomitant]
     Indication: PAIN
     Dosage: UNK UNK, BID (75/650 / MG / 1?0?1)
     Route: 048
     Dates: start: 20191114, end: 202006
  34. METAMIZOL [METAMIZOLE SODIUM] [Concomitant]
     Dosage: 500 MG (40?40?40, DROPS)
     Route: 048
     Dates: start: 20201229
  35. CLEXANE [Concomitant]
     Active Substance: ENOXAPARIN SODIUM
     Indication: EMBOLISM
     Dosage: 40 MG, QD
     Route: 058
     Dates: start: 20200617, end: 20200618
  36. MOXONIDINE [Concomitant]
     Active Substance: MOXONIDINE
     Indication: HYPOTENSION
     Dosage: 0.3 MG, QD (0?0?1)
     Route: 048
     Dates: start: 2017, end: 201812
  37. MOXONIDINE [Concomitant]
     Active Substance: MOXONIDINE
     Dosage: 0.3 MG, QD (1?0?1)
     Route: 048
     Dates: start: 201812
  38. CERTOPARIN SODIUM [Concomitant]
     Active Substance: CERTOPARIN SODIUM
     Indication: THROMBOSIS PROPHYLAXIS
     Dosage: 8000 IU, QD (1?0?0)
     Route: 058
     Dates: start: 20181217, end: 20181217
  39. METAMIZOL [METAMIZOLE SODIUM] [Concomitant]
     Dosage: 500 MG (20?20?30?30, DROPS)
     Route: 048
     Dates: start: 20200709, end: 20201125
  40. TARGIN [Concomitant]
     Active Substance: NALOXONE HYDROCHLORIDE\OXYCODONE HYDROCHLORIDE
     Indication: PAIN
     Dosage: UNK MG, BID (5/2.5)
     Route: 048
     Dates: start: 20200528, end: 20200618
  41. TRAMAL [Concomitant]
     Active Substance: TRAMADOL
     Indication: SPINAL OSTEOARTHRITIS
     Dosage: 100 MG, BID
     Route: 048
     Dates: start: 20200617, end: 20200709

REACTIONS (17)
  - Fall [Not Recovered/Not Resolved]
  - Urinary tract infection [Not Recovered/Not Resolved]
  - Stomatitis [Not Recovered/Not Resolved]
  - Erysipelas [Recovered/Resolved]
  - Haematoma [Not Recovered/Not Resolved]
  - Rash macular [Not Recovered/Not Resolved]
  - Chillblains [Not Recovered/Not Resolved]
  - Herpes zoster [Recovered/Resolved]
  - Micturition urgency [Recovered/Resolved]
  - Hyperhidrosis [Not Recovered/Not Resolved]
  - Nasal obstruction [Not Recovered/Not Resolved]
  - Pruritus [Recovered/Resolved]
  - Fatigue [Recovered/Resolved]
  - Otitis externa [Not Recovered/Not Resolved]
  - Eye pain [Not Recovered/Not Resolved]
  - Contusion [Recovering/Resolving]
  - Flank pain [Not Recovered/Not Resolved]

NARRATIVE: CASE EVENT DATE: 20180605
